FAERS Safety Report 6056121-3 (Version None)
Quarter: 2009Q1

REPORT INFORMATION
  Report Type: 
  Country: None (occurrence: None)
  Receive Date: 20090129
  Receipt Date: 20090126
  Transmission Date: 20090719
  Serious: Yes (Death, Hospitalization)
  Sender: FDA-Public Use
  Company Number: GB-SP-2008-03594

PATIENT
  Age: 71 Year
  Sex: Male

DRUGS (3)
  1. IMMUCYST [Suspect]
     Indication: BLADDER CANCER
     Route: 043
     Dates: start: 20071101, end: 20081103
  2. IMMUCYST [Suspect]
     Route: 043
     Dates: start: 20071101, end: 20081103
  3. WARFARIN SODIUM [Concomitant]
     Dates: end: 20081101

REACTIONS (11)
  - ASCITES [None]
  - BLADDER PERFORATION [None]
  - BLOOD ALBUMIN DECREASED [None]
  - BLOOD CREATININE INCREASED [None]
  - BOVINE TUBERCULOSIS [None]
  - HAEMOGLOBIN DECREASED [None]
  - INTERNATIONAL NORMALISED RATIO INCREASED [None]
  - LOSS OF CONSCIOUSNESS [None]
  - MELAENA [None]
  - TACHYCARDIA [None]
  - TACHYPNOEA [None]
